FAERS Safety Report 5386926-3 (Version None)
Quarter: 2007Q3

REPORT INFORMATION
  Report Type: 
  Country: None (occurrence: None)
  Receive Date: 20070713
  Receipt Date: 20070702
  Transmission Date: 20080115
  Serious: Yes (Other)
  Sender: FDA-Public Use
  Company Number: BR-PFIZER INC-2007053742

PATIENT
  Sex: Male
  Weight: 91 kg

DRUGS (6)
  1. VIAGRA [Suspect]
     Indication: ERECTILE DYSFUNCTION
     Route: 048
  2. MONOCORDIL [Interacting]
  3. SELOZOK [Concomitant]
  4. VALSARTAN [Concomitant]
  5. OTHER ANTIHYPERTENSIVES [Concomitant]
  6. METOPROLOL TARTRATE [Concomitant]

REACTIONS (3)
  - BLOOD PRESSURE DECREASED [None]
  - HYPERTENSION [None]
  - LABELLED DRUG-DRUG INTERACTION MEDICATION ERROR [None]
